FAERS Safety Report 20729789 (Version 1)
Quarter: 2022Q2

REPORT INFORMATION
  Report Type: Spontaneous
  Country: CA (occurrence: CA)
  Receive Date: 20220420
  Receipt Date: 20220420
  Transmission Date: 20220720
  Serious: Yes (Other)
  Sender: FDA-Public Use
  Company Number: CA-CELLTRION INC.-2022CA004800

PATIENT

DRUGS (1)
  1. TRUXIMA [Suspect]
     Active Substance: RITUXIMAB-ABBS
     Indication: Nephrotic syndrome
     Dosage: TOTAL DOSING OVER 2-2.5 YEARS= APPROX 8 DOSES/ WILL START WITH TWO DOSES APPROX 1 WEEK APART AND FOL

REACTIONS (2)
  - Nephrotic syndrome [Unknown]
  - Off label use [Unknown]
